FAERS Safety Report 7626019-5 (Version None)
Quarter: 2011Q3

REPORT INFORMATION
  Report Type: 
  Country: None (occurrence: None)
  Receive Date: 20110713
  Receipt Date: 20110705
  Transmission Date: 20111222
  Serious: Yes (Hospitalization, Other)
  Sender: FDA-Public Use
  Company Number: JPI-P-015751

PATIENT
  Age: 65 Year
  Sex: Male
  Weight: 102.0593 kg

DRUGS (6)
  1. LOSARTAN POTASSIUM [Concomitant]
  2. XYREM [Suspect]
     Indication: SLEEP APNOEA SYNDROME
     Dosage: ORAL ; ORAL ; 6 GM (3 GM,2 IN 1 D),ORAL
     Route: 048
     Dates: start: 20110101
  3. XYREM [Suspect]
     Indication: SLEEP APNOEA SYNDROME
     Dosage: ORAL ; ORAL ; 6 GM (3 GM,2 IN 1 D),ORAL
     Route: 048
     Dates: start: 20110101, end: 20110101
  4. XYREM [Suspect]
     Indication: SLEEP APNOEA SYNDROME
     Dosage: ORAL ; ORAL ; 6 GM (3 GM,2 IN 1 D),ORAL
     Route: 048
     Dates: start: 20100601, end: 20100701
  5. DOXAZOSIN MESYLATE [Concomitant]
  6. DULOXETINE HYDROCHLORIDE [Concomitant]

REACTIONS (2)
  - NEPHROLITHIASIS [None]
  - KIDNEY INFECTION [None]
